FAERS Safety Report 11124695 (Version 3)
Quarter: 2015Q3

REPORT INFORMATION
  Report Type: Spontaneous
  Country: US (occurrence: US)
  Receive Date: 20150520
  Receipt Date: 20150916
  Transmission Date: 20151125
  Serious: Yes (Other)
  Sender: FDA-Public Use
  Company Number: US-BAYER-2015-247745

PATIENT
  Age: 70 Year
  Sex: Male
  Weight: 76.28 kg

DRUGS (4)
  1. XOFIGO [Suspect]
     Active Substance: RADIUM RA-223 DICHLORIDE
     Indication: PROSTATE CANCER
     Dosage: 106 MCI, UNK
     Dates: start: 20150323, end: 20150323
  2. XOFIGO [Suspect]
     Active Substance: RADIUM RA-223 DICHLORIDE
     Indication: PROSTATE CANCER
     Dosage: 106 MCI, UNK
     Route: 042
     Dates: start: 20150420, end: 20150420
  3. XOFIGO [Suspect]
     Active Substance: RADIUM RA-223 DICHLORIDE
     Indication: PROSTATE CANCER
     Dosage: 96 MCI, UNK
     Route: 042
     Dates: start: 20150223, end: 20150223
  4. XOFIGO [Suspect]
     Active Substance: RADIUM RA-223 DICHLORIDE
     Indication: PROSTATE CANCER
     Dosage: 96 MCI, UNK
     Route: 042
     Dates: start: 20150223, end: 20150223

REACTIONS (3)
  - Bone pain [None]
  - Accident [None]
  - Pelvic fracture [None]
